FAERS Safety Report 9980797 (Version 3)
Quarter: 2014Q1

REPORT INFORMATION
  Report Type: Spontaneous
  Country: JP (occurrence: JP)
  Receive Date: 20140307
  Receipt Date: 20140328
  Transmission Date: 20141002
  Serious: Yes (Disabling, Other)
  Sender: FDA-Public Use
  Company Number: JP-BRISTOL-MYERS SQUIBB COMPANY-19950625

PATIENT
  Age: 67 Year
  Sex: Male
  Weight: 49 kg

DRUGS (3)
  1. ERBITUX SOLN FOR INF 5MG/ML [Suspect]
     Indication: LIP AND/OR ORAL CAVITY CANCER
     Dosage: 05-SEP-2013, 11-SEP-2013?19SEP13:26DEC13:98DAYS
     Route: 041
     Dates: start: 20130822, end: 20130825
  2. CISPLATIN FOR INJ [Concomitant]
     Indication: LIP AND/OR ORAL CAVITY CANCER
     Route: 041
     Dates: start: 20130822, end: 20130825
  3. 5-FLUOROURACIL [Concomitant]
     Indication: LIP AND/OR ORAL CAVITY CANCER
     Route: 041
     Dates: start: 20130822, end: 20130825

REACTIONS (3)
  - Soft tissue disorder [Not Recovered/Not Resolved]
  - Metastases to skin [Unknown]
  - Paronychia [Recovering/Resolving]
